FAERS Safety Report 4504096-8 (Version None)
Quarter: 2004Q4

REPORT INFORMATION
  Report Type: 
  Country: None (occurrence: None)
  Receive Date: 20041115
  Receipt Date: 20041108
  Transmission Date: 20050328
  Serious: Yes (Hospitalization, Other)
  Sender: FDA-Public Use
  Company Number: 2004-11-0596

PATIENT
  Age: 51 Year
  Sex: Female
  Weight: 77.1115 kg

DRUGS (10)
  1. PEG-INTRON [Suspect]
     Indication: HEPATITIS C
     Dosage: 120 MCG QW SUBCUTANEOUS
     Route: 058
     Dates: start: 20030509, end: 20040419
  2. REBETOL [Suspect]
     Indication: HEPATITIS C
     Dosage: SEE IMAGE
     Route: 048
     Dates: start: 20030509, end: 20030701
  3. PREMPRO [Concomitant]
  4. ZOLOFT [Concomitant]
  5. CLONAZEPAM [Concomitant]
  6. ALBUTEROL [Concomitant]
  7. FLOVENT [Concomitant]
  8. NEXIUM [Concomitant]
  9. METHADONE [Concomitant]
  10. PROCRIT [Concomitant]

REACTIONS (7)
  - ADHESION [None]
  - EMPHYSEMA [None]
  - PNEUMONITIS [None]
  - PNEUMOTHORAX [None]
  - PULMONARY FIBROSIS [None]
  - PYREXIA [None]
  - SUBCUTANEOUS EMPHYSEMA [None]
